FAERS Safety Report 6873967-X (Version None)
Quarter: 2010Q3

REPORT INFORMATION
  Report Type: 
  Country: None (occurrence: None)
  Receive Date: 20100723
  Receipt Date: 20090331
  Transmission Date: 20110219
  Serious: No
  Sender: FDA-Public Use
  Company Number: US-PFIZER INC-2009196181

PATIENT
  Sex: Female
  Weight: 80.272 kg

DRUGS (3)
  1. CHANTIX [Suspect]
     Indication: SMOKING CESSATION THERAPY
     Dosage: 0.5 MG, 1X/DAY
     Route: 048
     Dates: start: 20090327
  2. HYDROCHLOROTHIAZIDE [Concomitant]
     Dosage: UNK
     Route: 048
  3. ACIPHEX [Concomitant]
     Dosage: UNK
     Route: 048

REACTIONS (1)
  - ABDOMINAL PAIN [None]
